FAERS Safety Report 9526401 (Version 3)
Quarter: 2013Q4

REPORT INFORMATION
  Report Type: Spontaneous
  Country: DE (occurrence: DE)
  Receive Date: 20130916
  Receipt Date: 20131223
  Transmission Date: 20140711
  Serious: Yes (Other)
  Sender: FDA-Public Use
  Company Number: DE-UCBSA-097410

PATIENT
  Sex: Female

DRUGS (3)
  1. KEPPRA [Suspect]
     Indication: EPILEPSY
     Dosage: DAILY DOSE: 2000 MG
     Dates: start: 201104
  2. KEPPRA [Suspect]
     Indication: EPILEPSY
     Dosage: ADJUSTED DOSE
  3. MESTINON [Concomitant]

REACTIONS (1)
  - Weight increased [Recovering/Resolving]
